FAERS Safety Report 12878055 (Version 1)
Quarter: 2016Q4

REPORT INFORMATION
  Report Type: Spontaneous
  Country: FI (occurrence: FI)
  Receive Date: 20161024
  Receipt Date: 20161024
  Transmission Date: 20170207
  Serious: Yes (Life-Threatening, Hospitalization)
  Sender: FDA-Public Use
  Company Number: FI-PFIZER INC-2016493578

PATIENT
  Age: 19 Year
  Sex: Male

DRUGS (7)
  1. TREXAN [Suspect]
     Active Substance: METHOTREXATE SODIUM
     Indication: ACUTE LYMPHOCYTIC LEUKAEMIA
     Dosage: WEEKLY (1 IN 1 W)
     Dates: start: 20160824
  2. TREXAN [Suspect]
     Active Substance: METHOTREXATE SODIUM
     Dosage: 8300 MG, UNK
     Route: 042
     Dates: start: 20160831, end: 20160831
  3. MERCAPTOPURIN [Suspect]
     Active Substance: MERCAPTOPURINE
     Dosage: 125 MG, 1 IN 1 D
     Route: 048
     Dates: start: 20160831, end: 20160910
  4. TREXAN [Suspect]
     Active Substance: METHOTREXATE SODIUM
     Dosage: 12.5 MG, UNK
     Route: 037
     Dates: start: 20160831, end: 20160831
  5. PEG/L-ASPARAGINASE [Suspect]
     Active Substance: PEGASPARGASE
     Indication: ACUTE LYMPHOCYTIC LEUKAEMIA
     Dosage: 1700 IU, UNK
     Dates: start: 20160831, end: 20160831
  6. MERCAPTOPURIN [Suspect]
     Active Substance: MERCAPTOPURINE
     Indication: ACUTE LYMPHOCYTIC LEUKAEMIA
     Dosage: 1X/DAY (1 D)
     Route: 048
     Dates: start: 20160824
  7. KEPPRA [Suspect]
     Active Substance: LEVETIRACETAM
     Dosage: 250 MG, 2 IN 1 D

REACTIONS (5)
  - Cerebrovascular accident [Recovering/Resolving]
  - Neurotoxicity [Recovering/Resolving]
  - Platelet count decreased [Unknown]
  - Hepatic enzyme increased [Unknown]
  - Neutrophil count decreased [Not Recovered/Not Resolved]

NARRATIVE: CASE EVENT DATE: 20160909
